FAERS Safety Report 22861116 (Version 2)
Quarter: 2024Q2

REPORT INFORMATION
  Report Type: Spontaneous
  Country: CN (occurrence: CN)
  Receive Date: 20230824
  Receipt Date: 20240508
  Transmission Date: 20240716
  Serious: Yes (Hospitalization, Other)
  Sender: FDA-Public Use
  Company Number: CN-ORGANON-O2308CHN002509

PATIENT
  Age: 36 Year
  Sex: Female
  Weight: 45.1 kg

DRUGS (10)
  1. FOLLITROPIN BETA [Suspect]
     Active Substance: FOLLITROPIN BETA
     Indication: Ovulation induction
     Dosage: 120 IU, QD (STRENGTH: 600 IU/0.72ML)
     Route: 058
     Dates: start: 20230710, end: 20230714
  2. FOLLITROPIN BETA [Suspect]
     Active Substance: FOLLITROPIN BETA
     Dosage: 125 IU, QD (STRENGTH: 600 IU/0.72ML)
     Route: 058
     Dates: start: 20230715, end: 20230718
  3. MENOTROPINS [Suspect]
     Active Substance: MENOTROPINS
     Indication: Ovulation induction
     Dosage: 75 IU, QD
     Dates: start: 20230710, end: 20230718
  4. MENOTROPINS [Suspect]
     Active Substance: MENOTROPINS
     Dosage: 225 IU, QD
     Dates: start: 20230721, end: 20230721
  5. CHORIONIC GONADOTROPHIN [Suspect]
     Active Substance: CHORIOGONADOTROPIN ALFA
     Indication: Ovulation induction
     Dosage: 6000 IU, QD
     Dates: start: 20230721, end: 20230721
  6. FOLLITROPIN ALFA [Suspect]
     Active Substance: FOLLITROPIN ALFA
     Indication: Ovulation induction
     Dosage: 75 IU, QD
     Dates: start: 20230719, end: 20230720
  7. LUTROPIN ALFA [Suspect]
     Active Substance: LUTROPIN ALFA
     Indication: Ovulation induction
     Dosage: 75 IU, QD
     Route: 058
     Dates: start: 20230719, end: 20230720
  8. SODIUM CHLORIDE [Concomitant]
     Active Substance: SODIUM CHLORIDE
     Dosage: 2ML, QD (0.9%, 10 ML)
     Route: 030
     Dates: start: 20230710, end: 20230718
  9. SODIUM CHLORIDE [Concomitant]
     Active Substance: SODIUM CHLORIDE
     Dosage: 2 ML, QD
     Route: 030
     Dates: start: 20230721, end: 20230721
  10. STERILE WATER FOR INJECTION [Concomitant]
     Active Substance: WATER
     Dosage: 1 ML, QD
     Route: 058
     Dates: start: 20230719, end: 20230720

REACTIONS (5)
  - Chest discomfort [Recovering/Resolving]
  - Tension [Recovering/Resolving]
  - Dyspnoea [Recovering/Resolving]
  - Ovarian hyperstimulation syndrome [Recovering/Resolving]
  - Abdominal distension [Recovering/Resolving]

NARRATIVE: CASE EVENT DATE: 20230725
